FAERS Safety Report 17523040 (Version 5)
Quarter: 2020Q2

REPORT INFORMATION
  Report Type: Spontaneous
  Country: PL (occurrence: PL)
  Receive Date: 20200311
  Receipt Date: 20200611
  Transmission Date: 20200713
  Serious: Yes (Other)
  Sender: FDA-Public Use
  Company Number: PL-AUROBINDO-AUR-APL-2020-011575

PATIENT
  Age: 52 Year
  Sex: Female

DRUGS (10)
  1. IBUPROFEN. [Interacting]
     Active Substance: IBUPROFEN
     Indication: ARTHRALGIA
     Dosage: UNK, 400-1200 MG/DAY, AS NEEDED
     Route: 065
  2. IBUPROFEN. [Interacting]
     Active Substance: IBUPROFEN
     Indication: PAIN
  3. KETOPROFEN. [Interacting]
     Active Substance: KETOPROFEN
     Indication: PAIN
  4. ESTROGEN NOS [Concomitant]
     Active Substance: ESTROGENS
     Indication: HOT FLUSH
  5. PERINDOPRIL TABLET [Suspect]
     Active Substance: PERINDOPRIL
     Indication: HYPERTENSION
     Dosage: 10 MILLIGRAM, ONCE A DAY
     Route: 065
  6. ESTROGEN NOS [Concomitant]
     Active Substance: ESTROGENS
     Indication: MOOD ALTERED
  7. KETOPROFEN. [Interacting]
     Active Substance: KETOPROFEN
     Indication: ARTHRALGIA
     Dosage: UNK, 50-100MG/DAY TO BE TAKEN DEPENDING ON THE SEVERITY OF PAIN
     Route: 065
  8. DICLOFENAC SODIUM. [Interacting]
     Active Substance: DICLOFENAC SODIUM
     Indication: PAIN
     Dosage: 50-100 MILLIGRAM, AS NECESSARY
     Route: 048
  9. ESTROGEN NOS [Concomitant]
     Active Substance: ESTROGENS
     Indication: MENOPAUSAL SYMPTOMS
     Dosage: UNK, SINCE SEVERAL YEARS
     Route: 065
  10. DICLOFENAC SODIUM. [Interacting]
     Active Substance: DICLOFENAC SODIUM
     Indication: ARTHRALGIA
     Dosage: 100 MILLIGRAM, ONCE A DAY
     Route: 048

REACTIONS (6)
  - Off label use [Unknown]
  - Drug interaction [Recovered/Resolved]
  - Inhibitory drug interaction [Recovered/Resolved]
  - Labelled drug-drug interaction medication error [Recovered/Resolved]
  - Blood pressure increased [Recovered/Resolved]
  - Inadequate analgesia [Recovered/Resolved]

NARRATIVE: CASE EVENT DATE: 2019
